FAERS Safety Report 5201874-7 (Version None)
Quarter: 2006Q4

REPORT INFORMATION
  Report Type: 
  Country: None (occurrence: None)
  Receive Date: 20061010
  Receipt Date: 20060731
  Transmission Date: 20070319
  Serious: Yes (Other)
  Sender: FDA-Public Use
  Company Number: 2006-07-0654

PATIENT
  Sex: Male

DRUGS (6)
  1. TEMODAR [Suspect]
     Indication: BRAIN NEOPLASM
     Dosage: UNKNOWN ORAL
     Route: 048
  2. ZOFRAN [Suspect]
     Indication: VOMITING
     Dosage: UNKNOWN UNKNOWN
  3. RADIATION THERAPY [Concomitant]
  4. KEPPRA [Concomitant]
  5. DILANTIN [Concomitant]
  6. DECADRON [Concomitant]

REACTIONS (5)
  - CONSTIPATION [None]
  - CONVULSION [None]
  - FATIGUE [None]
  - NEOPLASM PROGRESSION [None]
  - VOMITING [None]
